FAERS Safety Report 10712001 (Version 1)
Quarter: 2015Q1

REPORT INFORMATION
  Report Type: Spontaneous
  Country: US (occurrence: US)
  Receive Date: 20150114
  Receipt Date: 20150114
  Transmission Date: 20150721
  Serious: No
  Sender: FDA-Public Use
  Company Number: US-ALLERGAN-1421666US

PATIENT
  Age: 4 Decade
  Sex: Male

DRUGS (1)
  1. ACZONE [Suspect]
     Active Substance: DAPSONE
     Indication: PRODUCT USED FOR UNKNOWN INDICATION
     Dosage: ONE OR TWO TIMES DAILY
     Route: 061

REACTIONS (2)
  - Infection [Unknown]
  - Inappropriate schedule of drug administration [Unknown]
